FAERS Safety Report 7765684-9 (Version None)
Quarter: 2011Q3

REPORT INFORMATION
  Report Type: 
  Country: None (occurrence: None)
  Receive Date: 20110921
  Receipt Date: 20110914
  Transmission Date: 20111222
  Serious: Yes (Death, Life-Threatening)
  Sender: FDA-Public Use
  Company Number: RS-TEVA-297632ISR

PATIENT
  Sex: Female
  Weight: 97 kg

DRUGS (12)
  1. LEMOD SOLU [Concomitant]
     Dosage: 40 MILLIGRAM;
     Dates: start: 20110729
  2. BROMAZEPAM [Concomitant]
     Dosage: 3 MILLIGRAM;
     Route: 048
     Dates: start: 20110729
  3. DEXASON [Concomitant]
     Dosage: 20 MILLIGRAM;
     Dates: start: 20110729
  4. CARBOPLATIN [Suspect]
     Indication: OVARIAN CANCER
     Dosage: 650MG
     Route: 042
     Dates: start: 20110705, end: 20110729
  5. DICLOFENAC SODIUM [Concomitant]
     Dosage: 75 MILLIGRAM;
     Route: 030
     Dates: start: 20110729
  6. SINDAXEL [Concomitant]
     Dosage: 330 MILLIGRAM;
     Dates: start: 20110729, end: 20110729
  7. PRESOLOL [Concomitant]
     Dosage: 25 MILLIGRAM;
     Route: 048
     Dates: start: 20110729
  8. ONDASAN [Concomitant]
     Dosage: 8 MILLIGRAM;
     Route: 048
     Dates: start: 20110729
  9. RANISAN [Concomitant]
     Dosage: 50 MILLIGRAM;
     Dates: start: 20110729
  10. SYNOPEN [Concomitant]
     Dosage: 20 MILLIGRAM;
     Dates: start: 20110729
  11. SYNOPEN [Concomitant]
     Dates: start: 20110729
  12. SYNOPEN [Concomitant]
     Dates: start: 20110729

REACTIONS (9)
  - MALAISE [None]
  - HYPERSENSITIVITY [None]
  - LOSS OF CONSCIOUSNESS [None]
  - RESPIRATORY ARREST [None]
  - CARDIAC ARREST [None]
  - BRONCHOSPASM [None]
  - COMA [None]
  - ASPHYXIA [None]
  - NAUSEA [None]
